FAERS Safety Report 17582369 (Version 1)
Quarter: 2020Q1

REPORT INFORMATION
  Report Type: Spontaneous
  Country: US (occurrence: US)
  Receive Date: 20200325
  Receipt Date: 20200325
  Transmission Date: 20200409
  Serious: No
  Sender: FDA-Public Use
  Company Number: US-ENDO PHARMACEUTICALS INC-2019-109222

PATIENT
  Sex: Male

DRUGS (2)
  1. AVEED [Suspect]
     Active Substance: TESTOSTERONE UNDECANOATE
     Dosage: 3 ML (750 MG), ONCE EVERY 10WK
     Route: 030
     Dates: start: 2019
  2. AVEED [Suspect]
     Active Substance: TESTOSTERONE UNDECANOATE
     Indication: TESTICULAR FAILURE
     Dosage: 3 ML (750 MG), INTIALLY, THEN 4 WKS AFTER, THEN EVERY 10 WKS
     Route: 030

REACTIONS (1)
  - Urine flow decreased [Unknown]
